FAERS Safety Report 21689915 (Version 1)
Quarter: 2022Q4

REPORT INFORMATION
  Report Type: Spontaneous
  Country: US (occurrence: None)
  Receive Date: 20221205
  Receipt Date: 20221205
  Transmission Date: 20230113
  Serious: Yes (Hospitalization)
  Sender: FDA-Public Use
  Company Number: None

PATIENT
  Sex: Male

DRUGS (10)
  1. PIRFENIDONE [Suspect]
     Active Substance: PIRFENIDONE
     Indication: Idiopathic pulmonary fibrosis
     Dosage: FREQUENCY : 3 TIMES A DAY;?
     Route: 048
     Dates: start: 20220614
  2. ATORVASTATIN [Concomitant]
     Active Substance: ATORVASTATIN
  3. BREO ELLIPTA INH [Concomitant]
  4. CARBAMAZEPIN TAB ER [Concomitant]
  5. CITALOPRAM TAB [Concomitant]
  6. FLUTICASONE POW PROPIONA [Concomitant]
  7. INCRUSE ELPT INH [Concomitant]
  8. MUCINEX TAB [Concomitant]
  9. OMEPRAZOLE SODIUM [Concomitant]
     Active Substance: OMEPRAZOLE SODIUM
  10. TYVASO SOL [Concomitant]

REACTIONS (1)
  - Hospitalisation [None]
